FAERS Safety Report 12822281 (Version 1)
Quarter: 2016Q4

REPORT INFORMATION
  Report Type: Spontaneous
  Country: US (occurrence: US)
  Receive Date: 20161006
  Receipt Date: 20161006
  Transmission Date: 20170207
  Serious: No
  Sender: FDA-Public Use
  Company Number: US-SHIONOGI, INC-2016000491

PATIENT
  Age: 57 Year
  Sex: Female

DRUGS (2)
  1. OSPHENA [Suspect]
     Active Substance: OSPEMIFENE
     Indication: OFF LABEL USE
  2. OSPHENA [Suspect]
     Active Substance: OSPEMIFENE
     Indication: HORMONE THERAPY
     Dosage: 60 MG, QD
     Route: 065
     Dates: start: 20160429

REACTIONS (2)
  - Off label use [Unknown]
  - Insomnia [Unknown]

NARRATIVE: CASE EVENT DATE: 20160430
